FAERS Safety Report 23784282 (Version 1)
Quarter: 2024Q2

REPORT INFORMATION
  Report Type: Spontaneous
  Country: US (occurrence: US)
  Receive Date: 20240425
  Receipt Date: 20240425
  Transmission Date: 20240716
  Serious: No
  Sender: FDA-Public Use
  Company Number: USA--2022-US-000169

PATIENT
  Sex: 0

DRUGS (2)
  1. HALOPERIDOL DECANOATE [Suspect]
     Active Substance: HALOPERIDOL DECANOATE
     Route: 030
     Dates: start: 20210726, end: 20210726
  2. HALOPERIDOL DECANOATE [Suspect]
     Active Substance: HALOPERIDOL DECANOATE
     Route: 030

REACTIONS (5)
  - Pyrexia [Unknown]
  - C-reactive protein increased [Unknown]
  - Myalgia [Unknown]
  - Induration [Unknown]
  - Insulin resistance [Recovered/Resolved]

NARRATIVE: CASE EVENT DATE: 20210730
